FAERS Safety Report 18984609 (Version 2)
Quarter: 2021Q3

REPORT INFORMATION
  Report Type: Other
  Country: IL (occurrence: IL)
  Receive Date: 20210309
  Receipt Date: 20210819
  Transmission Date: 20211014
  Serious: Yes (Other)
  Sender: FDA-Public Use
  Company Number: IL-ROCHE-2778982

PATIENT
  Age: 55 Year
  Sex: Female

DRUGS (2)
  1. XELODA [Suspect]
     Active Substance: CAPECITABINE
     Indication: BREAST CANCER
     Route: 048
     Dates: start: 202010
  2. AVASTIN [Suspect]
     Active Substance: BEVACIZUMAB
     Indication: PRODUCT USED FOR UNKNOWN INDICATION
     Route: 065

REACTIONS (8)
  - Burning sensation [Unknown]
  - Bone lesion [Unknown]
  - Skin disorder [Unknown]
  - Nausea [Unknown]
  - Abdominal rigidity [Unknown]
  - Skin exfoliation [Unknown]
  - Metastases to bone [Unknown]
  - Pain in extremity [Unknown]
